FAERS Safety Report 11181333 (Version 1)
Quarter: 2015Q2

REPORT INFORMATION
  Report Type: Spontaneous
  Country: US (occurrence: US)
  Receive Date: 20150611
  Receipt Date: 20150611
  Transmission Date: 20150821
  Serious: Yes (Other)
  Sender: FDA-Public Use
  Company Number: US-ENDO PHARMACEUTICALS INC.-LORA20140029

PATIENT
  Age: 66 Year
  Sex: Female

DRUGS (3)
  1. LORAZEPAM TABLETS 0.5MG [Suspect]
     Active Substance: LORAZEPAM
     Indication: PRODUCT USED FOR UNKNOWN INDICATION
     Dosage: UNKNOWN
     Route: 048
  2. WELLBUTRIN [Suspect]
     Active Substance: BUPROPION HYDROCHLORIDE
     Indication: PRODUCT USED FOR UNKNOWN INDICATION
     Dosage: UNKNOWN
     Route: 065
  3. PROZAC [Suspect]
     Active Substance: FLUOXETINE HYDROCHLORIDE
     Indication: PRODUCT USED FOR UNKNOWN INDICATION
     Dosage: UNKNOWN
     Route: 065

REACTIONS (37)
  - Vomiting [Unknown]
  - Pulmonary pain [Unknown]
  - Psychotic disorder [Unknown]
  - Alopecia [Unknown]
  - Dementia [Unknown]
  - Neuropathy peripheral [Unknown]
  - Malaise [Unknown]
  - Fall [Unknown]
  - Dyspnoea [Unknown]
  - Withdrawal syndrome [Unknown]
  - Constipation [Unknown]
  - Decreased appetite [Unknown]
  - Vision blurred [Unknown]
  - Unevaluable event [Unknown]
  - Depressed mood [Unknown]
  - Drug interaction [Unknown]
  - Crying [Unknown]
  - Back pain [Unknown]
  - Photosensitivity reaction [Unknown]
  - Depression [Unknown]
  - Dizziness postural [Unknown]
  - Nervous system disorder [Unknown]
  - Social avoidant behaviour [Unknown]
  - Hallucination [Unknown]
  - Confusional state [Unknown]
  - Suicidal ideation [Unknown]
  - Gastrointestinal disorder [Unknown]
  - Drug dependence [Unknown]
  - Feeling abnormal [Unknown]
  - Dry mouth [Unknown]
  - Dysphagia [Unknown]
  - Pain in extremity [Unknown]
  - Hot flush [Unknown]
  - White blood cell count decreased [Unknown]
  - Lymphoedema [Unknown]
  - Anger [Unknown]
  - Balance disorder [Unknown]
